FAERS Safety Report 7845594-9 (Version None)
Quarter: 2011Q4

REPORT INFORMATION
  Report Type: 
  Country: None (occurrence: None)
  Receive Date: 20111025
  Receipt Date: 20111018
  Transmission Date: 20120403
  Serious: Yes (Other)
  Sender: FDA-Public Use
  Company Number: US-SHIONOGI, INC-2011000197

PATIENT
  Sex: Male
  Weight: 39.002 kg

DRUGS (2)
  1. KAPVAY [Suspect]
     Dosage: UNK
     Dates: start: 20110929, end: 20110101
  2. VYVANSE [Concomitant]

REACTIONS (3)
  - HAEMOPTYSIS [None]
  - INSOMNIA [None]
  - CHEST PAIN [None]
